FAERS Safety Report 23778583 (Version 1)
Quarter: 2024Q2

REPORT INFORMATION
  Report Type: Spontaneous
  Country: US (occurrence: US)
  Receive Date: 20240424
  Receipt Date: 20240424
  Transmission Date: 20240716
  Serious: No
  Sender: FDA-Public Use
  Company Number: US-BRISTOL-MYERS SQUIBB COMPANY-2024-061646

PATIENT
  Age: 33 Year
  Sex: Female

DRUGS (3)
  1. THALOMID [Suspect]
     Active Substance: THALIDOMIDE
     Indication: Erythema multiforme
     Route: 048
     Dates: start: 201610
  2. THALOMID [Suspect]
     Active Substance: THALIDOMIDE
     Indication: Myalgia
     Route: 048
  3. THALOMID [Suspect]
     Active Substance: THALIDOMIDE
     Indication: Behcet^s syndrome

REACTIONS (4)
  - Gastroenteritis viral [Unknown]
  - Somnolence [Unknown]
  - Performance status decreased [Unknown]
  - Off label use [Unknown]
